FAERS Safety Report 25142322 (Version 2)
Quarter: 2025Q2

REPORT INFORMATION
  Report Type: Spontaneous
  Country: US (occurrence: US)
  Receive Date: 20250331
  Receipt Date: 20250401
  Transmission Date: 20250717
  Serious: No
  Sender: MISSION
  Company Number: US-Mission Pharmacal Company-2173967

PATIENT
  Age: 42 Year
  Sex: Female

DRUGS (1)
  1. THIOLA EC [Suspect]
     Active Substance: TIOPRONIN
     Indication: Cystinuria
     Dates: start: 20250306, end: 20250326

REACTIONS (3)
  - Rash [Unknown]
  - Pyrexia [Unknown]
  - Arthralgia [Unknown]

NARRATIVE: CASE EVENT DATE: 20250326
